FAERS Safety Report 22366765 (Version 1)
Quarter: 2023Q2

REPORT INFORMATION
  Report Type: Spontaneous
  Country: US (occurrence: None)
  Receive Date: 20230524
  Receipt Date: 20230524
  Transmission Date: 20230722
  Serious: Yes (Hospitalization)
  Sender: FDA-Public Use
  Company Number: None

PATIENT
  Age: 58 Year
  Sex: Male

DRUGS (1)
  1. MYCOPHENOLIC ACID [Suspect]
     Active Substance: MYCOPHENOLIC ACID
     Indication: Sarcoidosis
     Dosage: FREQUENCY : AS DIRECTED;?
     Route: 048
     Dates: start: 20230216

REACTIONS (1)
  - Lung disorder [None]

NARRATIVE: CASE EVENT DATE: 20230520
